FAERS Safety Report 8430211-X (Version None)
Quarter: 2012Q2

REPORT INFORMATION
  Report Type: 
  Country: None (occurrence: None)
  Receive Date: 20120323
  Receipt Date: 20111213
  Transmission Date: 20120825
  Serious: Yes (Other)
  Sender: FDA-Public Use
  Company Number: 163-21880-11083120

PATIENT
  Age: 73 Year
  Sex: Female
  Weight: 51.2565 kg

DRUGS (2)
  1. PLAVIX [Concomitant]
  2. REVLIMID [Suspect]
     Indication: MULTIPLE MYELOMA
     Dosage: 5 MG, 1 IN 1 D, PO
     Route: 048
     Dates: start: 20110823, end: 20110823

REACTIONS (4)
  - PHARYNGEAL OEDEMA [None]
  - DYSPNOEA [None]
  - VISION BLURRED [None]
  - PRESYNCOPE [None]
